FAERS Safety Report 12839691 (Version 1)
Quarter: 2016Q4

REPORT INFORMATION
  Report Type: Spontaneous
  Country: US (occurrence: US)
  Receive Date: 20161011
  Receipt Date: 20161011
  Transmission Date: 20170207
  Serious: Yes (Other)
  Sender: FDA-Public Use
  Company Number: None

PATIENT
  Age: 39 Year
  Sex: Female
  Weight: 65.25 kg

DRUGS (1)
  1. HYOSCAMINE SULFATE 0.125 MG TAB [Suspect]
     Active Substance: HYOSCYAMINE SULFATE
     Indication: IRRITABLE BOWEL SYNDROME
     Dosage: ?          QUANTITY:2 TABLET(S);?
     Route: 048

REACTIONS (10)
  - Feeling hot [None]
  - Vision blurred [None]
  - Dizziness [None]
  - Disturbance in attention [None]
  - Balance disorder [None]
  - Pyrexia [None]
  - Disorientation [None]
  - Gait disturbance [None]
  - Dry mouth [None]
  - Heart rate irregular [None]

NARRATIVE: CASE EVENT DATE: 20160810
